FAERS Safety Report 12299207 (Version 2)
Quarter: 2016Q2

REPORT INFORMATION
  Report Type: Report from Study
  Country: KE (occurrence: KE)
  Receive Date: 20160425
  Receipt Date: 20160511
  Transmission Date: 20160815
  Serious: Yes (Hospitalization, Other)
  Sender: FDA-Public Use
  Company Number: PHHY2016KE054367

PATIENT
  Age: 26 Year
  Sex: Female

DRUGS (1)
  1. GLIVEC [Suspect]
     Active Substance: IMATINIB MESYLATE
     Indication: CHRONIC MYELOID LEUKAEMIA
     Dosage: 400 MG, UNK
     Route: 048
     Dates: start: 20150408, end: 20151203

REACTIONS (2)
  - Tuberculosis [Unknown]
  - Breast swelling [Not Recovered/Not Resolved]

NARRATIVE: CASE EVENT DATE: 20150510
